FAERS Safety Report 8357501-3 (Version None)
Quarter: 2012Q2

REPORT INFORMATION
  Report Type: 
  Country: None (occurrence: None)
  Receive Date: 20120514
  Receipt Date: 20120507
  Transmission Date: 20120825
  Serious: Yes (Hospitalization)
  Sender: FDA-Public Use
  Company Number: US-AMGEN-USASP2012028734

PATIENT
  Age: 54 Year
  Sex: Female

DRUGS (1)
  1. ENBREL [Suspect]
     Indication: RHEUMATOID ARTHRITIS
     Dosage: 50 MG, QWK
     Dates: start: 20060119, end: 20120101

REACTIONS (9)
  - NASOPHARYNGITIS [None]
  - LUNG DISORDER [None]
  - CARBON DIOXIDE INCREASED [None]
  - PNEUMONIA [None]
  - SOMNOLENCE [None]
  - OXYGEN SATURATION DECREASED [None]
  - IMMUNE SYSTEM DISORDER [None]
  - CHRONIC OBSTRUCTIVE PULMONARY DISEASE [None]
  - UPPER RESPIRATORY TRACT INFECTION [None]
